FAERS Safety Report 22049103 (Version 1)
Quarter: 2023Q1

REPORT INFORMATION
  Report Type: Spontaneous
  Country: NO (occurrence: NO)
  Receive Date: 20230301
  Receipt Date: 20230301
  Transmission Date: 20230417
  Serious: Yes (Death)
  Sender: FDA-Public Use
  Company Number: None

PATIENT
  Age: 84 Year
  Sex: Male

DRUGS (4)
  1. ALTEPLASE [Suspect]
     Active Substance: ALTEPLASE
     Indication: Cerebrovascular accident
     Dosage: GIVEN 2 HOURS AFTER ONSET OF SYMPTOMS. WEIGHT-ADJUSTED DOSE ADMINISTERED ACCORDING TO SMPC AND LOCAL
     Route: 065
     Dates: start: 20211116, end: 20211116
  2. TRAMADOL HYDROCHLORIDE [Concomitant]
     Active Substance: TRAMADOL HYDROCHLORIDE
     Indication: Product used for unknown indication
  3. ASPIRIN\MAGNESIUM OXIDE [Concomitant]
     Active Substance: ASPIRIN\MAGNESIUM OXIDE
     Indication: Product used for unknown indication
  4. HYDROCHLOROTHIAZIDE\LOSARTAN POTASSIUM [Concomitant]
     Active Substance: HYDROCHLOROTHIAZIDE\LOSARTAN POTASSIUM
     Indication: Hypertension

REACTIONS (3)
  - Cardiac arrest [Fatal]
  - Circulatory collapse [Fatal]
  - Cerebral haemorrhage [Fatal]

NARRATIVE: CASE EVENT DATE: 20211116
